FAERS Safety Report 6453019-3 (Version None)
Quarter: 2009Q4

REPORT INFORMATION
  Report Type: 
  Country: None (occurrence: None)
  Receive Date: 20091124
  Receipt Date: 20090803
  Transmission Date: 20100525
  Serious: No
  Sender: FDA-Public Use
  Company Number: US-ABBOTT-09P-163-0589357-00

PATIENT
  Sex: Male
  Weight: 102.15 kg

DRUGS (8)
  1. TRICOR [Suspect]
     Indication: BLOOD CHOLESTEROL INCREASED
     Route: 048
     Dates: start: 20080101
  2. TRICOR [Suspect]
     Indication: BLOOD TRIGLYCERIDES INCREASED
     Route: 048
     Dates: start: 20080101
  3. TRICOR [Suspect]
     Route: 048
     Dates: start: 20080101
  4. LIPITOR [Suspect]
     Indication: BLOOD CHOLESTEROL INCREASED
     Route: 048
     Dates: start: 20050101
  5. LOPRESSOR [Concomitant]
     Indication: HYPERTENSION
     Route: 048
  6. CAPTOPIRIL [Concomitant]
     Indication: HYPERTENSION
     Route: 048
  7. PAXIL [Concomitant]
     Indication: ANTIDEPRESSANT THERAPY
     Route: 048
  8. KLONOPIN [Concomitant]
     Indication: ANXIOLYTIC THERAPY
     Route: 048

REACTIONS (1)
  - MYALGIA [None]
